FAERS Safety Report 15105224 (Version 4)
Quarter: 2018Q4

REPORT INFORMATION
  Report Type: Report from Study
  Country: None (occurrence: US)
  Receive Date: 20180704
  Receipt Date: 20181004
  Transmission Date: 20190204
  Serious: Yes (Other)
  Sender: FDA-Public Use
  Company Number: US-ABBVIE-18K-163-2405712-00

PATIENT
  Sex: Male
  Weight: 78.09 kg

DRUGS (1)
  1. HUMIRA [Suspect]
     Active Substance: ADALIMUMAB
     Indication: CROHN^S DISEASE
     Route: 058
     Dates: start: 20160210, end: 201809

REACTIONS (5)
  - Hypoacusis [Unknown]
  - Flatulence [Unknown]
  - Intestinal cyst [Unknown]
  - Abdominal distension [Recovered/Resolved]
  - Pain [Unknown]
